FAERS Safety Report 24125440 (Version 1)
Quarter: 2024Q3

REPORT INFORMATION
  Report Type: Spontaneous
  Country: AU (occurrence: None)
  Receive Date: 20240721
  Receipt Date: 20240721
  Transmission Date: 20241016
  Serious: Yes (Life-Threatening, Hospitalization, Other)
  Sender: Public
  Company Number: None

PATIENT
  Age: 31 Year
  Sex: Female
  Weight: 47 kg

DRUGS (1)
  1. IMPLANON [Suspect]
     Active Substance: ETONOGESTREL
     Indication: Ectopic pregnancy
     Dosage: OTHER QUANTITY : 1.68 SUPPOSITORY(IES) ;?
     Dates: start: 20220111

REACTIONS (3)
  - Ectopic pregnancy [None]
  - Exposure during pregnancy [None]
  - Device dislocation [None]

NARRATIVE: CASE EVENT DATE: 20220111
